FAERS Safety Report 22752606 (Version 5)
Quarter: 2023Q4

REPORT INFORMATION
  Report Type: Spontaneous
  Country: US (occurrence: US)
  Receive Date: 20230726
  Receipt Date: 20231120
  Transmission Date: 20240110
  Serious: No
  Sender: FDA-Public Use
  Company Number: US-SA-SAC20230724000120

PATIENT
  Sex: Female
  Weight: 49.89 kg

DRUGS (2)
  1. DUPIXENT [Suspect]
     Active Substance: DUPILUMAB
     Indication: Neurodermatitis
     Dosage: 300 MG, QOW
     Route: 058
  2. DUPIXENT [Suspect]
     Active Substance: DUPILUMAB
     Indication: Illness

REACTIONS (11)
  - Diarrhoea [Recovered/Resolved]
  - Sneezing [Unknown]
  - Nausea [Recovered/Resolved]
  - Decreased appetite [Recovering/Resolving]
  - Weight decreased [Unknown]
  - Rash pustular [Not Recovered/Not Resolved]
  - Anxiety [Unknown]
  - Arthropod sting [Unknown]
  - Pruritus [Not Recovered/Not Resolved]
  - Pain in extremity [Unknown]
  - Product dose omission issue [Unknown]
